FAERS Safety Report 9277401 (Version 1)
Quarter: 2013Q2

REPORT INFORMATION
  Report Type: Spontaneous
  Country: US (occurrence: US)
  Receive Date: 20130508
  Receipt Date: 20130508
  Transmission Date: 20140414
  Serious: Yes (Hospitalization)
  Sender: FDA-Public Use
  Company Number: US-BAYER-2013-056044

PATIENT
  Age: 21 Year
  Sex: Female
  Weight: 102.95 kg

DRUGS (7)
  1. YASMIN [Suspect]
  2. TYLENOL EXTRA STRENGTH [Concomitant]
  3. MOTRIN [Concomitant]
  4. OXYCONTIN [Concomitant]
  5. LEVAQUIN [Concomitant]
  6. PREVACID [Concomitant]
  7. TORADOL [Concomitant]

REACTIONS (1)
  - Pulmonary embolism [None]
